FAERS Safety Report 15812156 (Version 1)
Quarter: 2019Q1

REPORT INFORMATION
  Report Type: Spontaneous
  Country: CH (occurrence: CH)
  Receive Date: 20190111
  Receipt Date: 20190111
  Transmission Date: 20190417
  Serious: Yes (Other)
  Sender: FDA-Public Use
  Company Number: CH-AMREGENT-20171615

PATIENT
  Age: 14 Year
  Sex: Female
  Weight: 64 kg

DRUGS (1)
  1. FERINJECT [Suspect]
     Active Substance: FERRIC CARBOXYMALTOSE
     Dosage: UNKNOWN
     Route: 041

REACTIONS (9)
  - Lymphadenopathy [Recovered/Resolved]
  - Drug monitoring procedure not performed [Unknown]
  - Injury associated with device [Unknown]
  - Pyrexia [Recovered/Resolved]
  - Ill-defined disorder [Unknown]
  - Pain in extremity [None]
  - Infusion site swelling [Unknown]
  - Infusion site extravasation [None]
  - Infusion site bruising [Unknown]

NARRATIVE: CASE EVENT DATE: 201706
